FAERS Safety Report 5837596-9 (Version None)
Quarter: 2008Q3

REPORT INFORMATION
  Report Type: 
  Country: None (occurrence: None)
  Receive Date: 20080807
  Receipt Date: 20080729
  Transmission Date: 20090109
  Serious: Yes (Death)
  Sender: FDA-Public Use
  Company Number: DE-AMGEN-UK298271

PATIENT
  Age: 51 Year
  Sex: Male

DRUGS (3)
  1. KINERET [Suspect]
     Indication: RHEUMATOID ARTHRITIS
     Route: 058
     Dates: start: 20021201, end: 20030801
  2. METHOTREXATE [Concomitant]
     Route: 065
     Dates: start: 20060501
  3. LEFLUNOMIDE [Concomitant]
     Route: 065
     Dates: start: 20040701, end: 20060501

REACTIONS (2)
  - FALL [None]
  - MULTIPLE INJURIES [None]
